FAERS Safety Report 18679980 (Version 1)
Quarter: 2020Q4

REPORT INFORMATION
  Report Type: Spontaneous
  Country: US (occurrence: US)
  Receive Date: 20201230
  Receipt Date: 20201230
  Transmission Date: 20210114
  Serious: No
  Sender: FDA-Public Use
  Company Number: US-APOTEX-2020AP011134

PATIENT
  Sex: Female

DRUGS (2)
  1. CALCITONIN SALMON. [Suspect]
     Active Substance: CALCITONIN SALMON
     Indication: FRACTURE
     Dosage: 2 DF, QD (1 SPRAY IN EACH NOSTRIL)
     Route: 045
  2. CALCITONIN SALMON. [Suspect]
     Active Substance: CALCITONIN SALMON
     Indication: INTERVERTEBRAL DISC DISORDER

REACTIONS (5)
  - Nervousness [Recovered/Resolved]
  - Paraesthesia [Recovered/Resolved]
  - Epistaxis [Recovered/Resolved]
  - Drug ineffective [Unknown]
  - Malaise [Recovered/Resolved]
